FAERS Safety Report 11746506 (Version 1)
Quarter: 2015Q4

REPORT INFORMATION
  Report Type: Spontaneous
  Country: US (occurrence: None)
  Receive Date: 20151116
  Receipt Date: 20151116
  Transmission Date: 20160304
  Serious: Yes (Death)
  Sender: FDA-Public Use
  Company Number: None

PATIENT
  Age: 74 Year
  Sex: Male

DRUGS (11)
  1. VOTRIENT [Suspect]
     Active Substance: PAZOPANIB HYDROCHLORIDE
     Indication: NEOPLASM MALIGNANT
     Route: 048
     Dates: start: 20130608, end: 20151113
  2. FISH OIL [Concomitant]
     Active Substance: FISH OIL
  3. COUMADIN [Concomitant]
     Active Substance: WARFARIN SODIUM
  4. REPAGLINIDE. [Concomitant]
     Active Substance: REPAGLINIDE
  5. VITAMIN D [Concomitant]
     Active Substance: CHOLECALCIFEROL
  6. VOTRIENT [Concomitant]
     Active Substance: PAZOPANIB HYDROCHLORIDE
  7. COQ10 [Concomitant]
     Active Substance: UBIDECARENONE
  8. SUTENT [Concomitant]
     Active Substance: SUNITINIB MALATE
  9. AFINITOR [Concomitant]
     Active Substance: EVEROLIMUS
  10. BUMETANIDE. [Concomitant]
     Active Substance: BUMETANIDE
  11. PLAVIX [Concomitant]
     Active Substance: CLOPIDOGREL BISULFATE

REACTIONS (1)
  - Death [None]

NARRATIVE: CASE EVENT DATE: 20151113
